FAERS Safety Report 6489700-X (Version None)
Quarter: 2009Q4

REPORT INFORMATION
  Report Type: 
  Country: None (occurrence: None)
  Receive Date: 20091207
  Receipt Date: 20091120
  Transmission Date: 20100525
  Serious: Yes (Hospitalization)
  Sender: FDA-Public Use
  Company Number: AT-EBEWE-0703MTX09

PATIENT
  Age: 12 Year
  Sex: Female
  Weight: 33.8 kg

DRUGS (4)
  1. METHOTREXATE [Suspect]
     Indication: BONE SARCOMA
     Dosage: 14.56 G, DAILY, IV
     Route: 042
     Dates: start: 20090423, end: 20090423
  2. ZOFRAN [Concomitant]
  3. AMPHO-MORONAL (AMPHOTERICIN B) [Concomitant]
  4. TRIMETHOPRIM-SULFAMETHOXAZOLE [Concomitant]

REACTIONS (5)
  - ABDOMINAL PAIN [None]
  - BLOOD PRESSURE DECREASED [None]
  - FLUSHING [None]
  - LIVER DISORDER [None]
  - VOMITING [None]
